FAERS Safety Report 12834206 (Version 2)
Quarter: 2016Q4

REPORT INFORMATION
  Report Type: Spontaneous
  Country: IN (occurrence: IN)
  Receive Date: 20161010
  Receipt Date: 20161012
  Transmission Date: 20170207
  Serious: Yes (Hospitalization, Other)
  Sender: FDA-Public Use
  Company Number: IN-SA-2016SA181810

PATIENT
  Age: 40 Year
  Sex: Female

DRUGS (5)
  1. LIDOCAINE HYDROCHLORIDE. [Suspect]
     Active Substance: LIDOCAINE HYDROCHLORIDE
     Indication: EPIDURAL ANAESTHESIA
     Dosage: A LOADING DOSE OF 3 ML OF INJECTION LIDOCAINE 2% PLUS ADRENALINE (1:200000)
     Route: 008
  2. RINGER [Concomitant]
     Dosage: STARTED THROUGH 18G IV CANNULA.
  3. EPINEPHRINE. [Suspect]
     Active Substance: EPINEPHRINE
     Indication: EPIDURAL ANAESTHESIA
     Dosage: A LOADING DOSE OF 3 ML OF INJECTION LIDOCAINE 2% PLUS ADRENALINE (1:200000)
     Route: 008
  4. MIDAZOLAM [Suspect]
     Active Substance: MIDAZOLAM\MIDAZOLAM HYDROCHLORIDE
     Indication: SEDATION
     Dosage: SUPPLEMENTAL
     Route: 042
  5. ROPIVACAINE [Suspect]
     Active Substance: ROPIVACAINE
     Indication: EPIDURAL ANAESTHESIA
     Dosage: INCREMENTAL INJECTIONS OF 12 ML OF ROPIVACAINE 0.5%
     Route: 008

REACTIONS (7)
  - Anaesthetic complication [Recovered/Resolved]
  - Muscular weakness [Recovered/Resolved]
  - Sensory level abnormal [Recovered/Resolved]
  - Hypoaesthesia [Recovered/Resolved]
  - Wrong technique in product usage process [Unknown]
  - Blood pressure decreased [Recovered/Resolved]
  - Temperature perception test abnormal [Recovered/Resolved]
